FAERS Safety Report 13450159 (Version 1)
Quarter: 2017Q2

REPORT INFORMATION
  Report Type: Spontaneous
  Country: US (occurrence: US)
  Receive Date: 20170417
  Receipt Date: 20170417
  Transmission Date: 20170830
  Serious: No
  Sender: FDA-Public Use
  Company Number: US-BION-20160213

PATIENT
  Sex: Female

DRUGS (1)
  1. NAPROXEN SODIUM CAPSULES, 220 MG [Suspect]
     Active Substance: NAPROXEN SODIUM
     Indication: ARTHRALGIA
     Dosage: 1 DSF TAKEN TWICE DAILY
     Route: 048

REACTIONS (1)
  - Drug ineffective [Recovered/Resolved]
